FAERS Safety Report 12977599 (Version 2)
Quarter: 2017Q2

REPORT INFORMATION
  Report Type: Spontaneous
  Country: DK (occurrence: DK)
  Receive Date: 20161128
  Receipt Date: 20170401
  Transmission Date: 20170830
  Serious: Yes (Death, Hospitalization)
  Sender: FDA-Public Use
  Company Number: DK-AUROBINDO-AUR-APL-2016-14260

PATIENT
  Age: 54 Year
  Sex: Male

DRUGS (2)
  1. VENLAFAXINE [Suspect]
     Active Substance: VENLAFAXINE HYDROCHLORIDE
     Indication: DEPRESSION
     Dosage: 1500 MG, UNK
     Route: 065
  2. SERTRALINE [Suspect]
     Active Substance: SERTRALINE HYDROCHLORIDE
     Indication: DEPRESSION
     Dosage: 5000 MG, UNK
     Route: 065

REACTIONS (15)
  - Overdose [Unknown]
  - Cardiac arrest [Fatal]
  - Serotonin syndrome [Unknown]
  - Seizure [Unknown]
  - Blood pressure decreased [Unknown]
  - Heart rate increased [Unknown]
  - Muscle rigidity [Unknown]
  - Myoclonus [Unknown]
  - Vomiting [Unknown]
  - Flushing [Unknown]
  - Unresponsive to stimuli [Unknown]
  - Suicidal ideation [Unknown]
  - Tremor [Unknown]
  - Bradycardia [Unknown]
  - Agitation [Unknown]
